FAERS Safety Report 5553315-8 (Version None)
Quarter: 2007Q4

REPORT INFORMATION
  Report Type: 
  Country: None (occurrence: None)
  Receive Date: 20071212
  Receipt Date: 20070712
  Transmission Date: 20080405
  Serious: No
  Sender: FDA-Public Use
  Company Number: US-AMGEN-KDL227896

PATIENT
  Sex: Female
  Weight: 90.8 kg

DRUGS (3)
  1. ENBREL [Suspect]
     Indication: PSORIATIC ARTHROPATHY
     Route: 058
     Dates: start: 20070101, end: 20070623
  2. DIOVAN HCT [Concomitant]
     Dates: start: 20051201
  3. ZYRTEC [Concomitant]
     Dates: start: 20070301

REACTIONS (1)
  - GALLBLADDER DISORDER [None]
